FAERS Safety Report 17966266 (Version 5)
Quarter: 2020Q4

REPORT INFORMATION
  Report Type: Spontaneous
  Country: CA (occurrence: CA)
  Receive Date: 20200701
  Receipt Date: 20201029
  Transmission Date: 20210113
  Serious: Yes (Hospitalization, Other)
  Sender: FDA-Public Use
  Company Number: CA-CELLTRION INC.-2020CA023670

PATIENT

DRUGS (7)
  1. INFLECTRA [Suspect]
     Active Substance: INFLIXIMAB-DYYB
     Dosage: 410 MG, EVERY 8 WEEKS
     Route: 042
     Dates: start: 20200806
  2. SEPTRA [Concomitant]
     Active Substance: SULFAMETHOXAZOLE\TRIMETHOPRIM
     Indication: SARCOIDOSIS
     Dosage: UNK
     Route: 065
  3. PREDNISONE. [Concomitant]
     Active Substance: PREDNISONE
     Dosage: 40 MG TAPER
     Route: 065
  4. MYCOPHENOLATE [Concomitant]
     Active Substance: MYCOPHENOLIC ACID
     Indication: BLOOD SODIUM ABNORMAL
     Dosage: UNK
  5. INFLECTRA [Suspect]
     Active Substance: INFLIXIMAB-DYYB
     Indication: SARCOIDOSIS
     Dosage: 410 MG (INDUCTION REGIMEN, NOT SPECIFIED)
     Route: 042
     Dates: start: 2020, end: 20200604
  6. INFLECTRA [Suspect]
     Active Substance: INFLIXIMAB-DYYB
     Dosage: 410 MG, EVERY 8 WEEKS
     Route: 042
     Dates: start: 20200604
  7. INFLECTRA [Suspect]
     Active Substance: INFLIXIMAB-DYYB
     Dosage: 410 MG, EVERY 8 WEEKS
     Route: 042
     Dates: start: 20200928

REACTIONS (14)
  - Blood sodium abnormal [Unknown]
  - Intentional product use issue [Unknown]
  - Therapeutic response unexpected [Unknown]
  - Energy increased [Unknown]
  - Fatigue [Unknown]
  - Product use in unapproved indication [Unknown]
  - Rash [Recovering/Resolving]
  - Acarodermatitis [Unknown]
  - Off label use [Unknown]
  - Drug effective for unapproved indication [Unknown]
  - Fungal skin infection [Recovering/Resolving]
  - Coma [Recovered/Resolved]
  - Blood pressure fluctuation [Unknown]
  - Rash papular [Unknown]

NARRATIVE: CASE EVENT DATE: 2020
